FAERS Safety Report 8472235-2 (Version None)
Quarter: 2012Q2

REPORT INFORMATION
  Report Type: 
  Country: None (occurrence: None)
  Receive Date: 20120622
  Receipt Date: 20120622
  Transmission Date: 20120825
  Serious: Yes (Life-Threatening)
  Sender: FDA-Public Use
  Company Number: None

PATIENT
  Age: 57 Year
  Sex: Female

DRUGS (1)
  1. XOLAIR [Suspect]
     Indication: ILL-DEFINED DISORDER
     Dosage: 150MG Q4 WEEKS SQ
     Route: 058
     Dates: start: 20120213, end: 20120523

REACTIONS (4)
  - DYSPNOEA [None]
  - HYPERHIDROSIS [None]
  - FLUSHING [None]
  - ABDOMINAL PAIN [None]
